FAERS Safety Report 10102455 (Version 3)
Quarter: 2020Q3

REPORT INFORMATION
  Report Type: Report from Study
  Country: PL (occurrence: PL)
  Receive Date: 20140424
  Receipt Date: 20141215
  Transmission Date: 20201105
  Serious: Yes (Hospitalization, Other)
  Sender: FDA-Public Use
  Company Number: PHHY2014PL048412

PATIENT
  Age: 69 Year
  Sex: Female

DRUGS (17)
  1. 5?FLUOROURACIL [Suspect]
     Active Substance: FLUOROURACIL
     Dosage: 596 MG, UNK
     Route: 042
     Dates: start: 20131224
  2. 5?FLUOROURACIL [Suspect]
     Active Substance: FLUOROURACIL
     Dosage: 596 MG, UNK
     Route: 040
     Dates: start: 20140310
  3. CYANOCOBALAMIN. [Concomitant]
     Active Substance: CYANOCOBALAMIN
     Indication: RHEUMATOID ARTHRITIS
     Dosage: 1000 ML, UNK
     Route: 030
  4. OXALIPLATIN. [Suspect]
     Active Substance: OXALIPLATIN
     Dosage: 96.85 MG, UNK
     Dates: start: 20140310
  5. ZOLPIDEM [Concomitant]
     Active Substance: ZOLPIDEM TARTRATE
     Indication: INSOMNIA
     Dosage: 10 MG, UNK
     Route: 048
     Dates: start: 20140120
  6. OXALIPLATIN. [Suspect]
     Active Substance: OXALIPLATIN
     Dosage: 96.85 MG, UNK
     Route: 042
     Dates: start: 20131224
  7. FOLINIC ACID [Suspect]
     Active Substance: LEUCOVORIN
     Dosage: 596 MG, UNK
     Route: 042
     Dates: start: 20140310
  8. ONARTUZUMAB. [Suspect]
     Active Substance: ONARTUZUMAB
     Dates: start: 20140310
  9. PARACETAMOL [Concomitant]
     Active Substance: ACETAMINOPHEN
     Indication: ABDOMINAL PAIN UPPER
     Dosage: 500 MG, UNK
     Route: 048
  10. FOLINIC ACID [Suspect]
     Active Substance: LEUCOVORIN
     Indication: GASTROOESOPHAGEAL CANCER
     Dosage: 596 MG, UNK
     Route: 042
     Dates: start: 20131224
  11. 5?FLUOROURACIL [Suspect]
     Active Substance: FLUOROURACIL
     Indication: GASTROOESOPHAGEAL CANCER
     Dosage: 596 MG, UNK
     Route: 040
     Dates: start: 20131224
  12. 5?FLUOROURACIL [Suspect]
     Active Substance: FLUOROURACIL
     Dosage: 596 MG, UNK
     Route: 042
     Dates: start: 20140310
  13. ZOFRAN [Concomitant]
     Active Substance: ONDANSETRON HYDROCHLORIDE
     Indication: NAUSEA
     Dosage: 24 MG, UNK
     Route: 048
     Dates: start: 20131216
  14. INDAPAMIDUM [Concomitant]
     Indication: HYPERTENSION
     Dosage: 1.5 MG, UNK
     Route: 048
     Dates: start: 2002
  15. AMLODIPINUM [Concomitant]
     Indication: HYPERTENSION
     Dosage: 5 MG, UNK
     Route: 048
     Dates: start: 2002
  16. ONARTUZUMAB. [Suspect]
     Active Substance: ONARTUZUMAB
     Indication: GASTROOESOPHAGEAL CANCER
     Route: 042
     Dates: start: 20131224
  17. DEXAMETHASONE. [Concomitant]
     Active Substance: DEXAMETHASONE
     Indication: PROPHYLAXIS
     Dosage: 8 MG, UNK
     Route: 042
     Dates: start: 20131224

REACTIONS (1)
  - Pulmonary embolism [Recovered/Resolved]

NARRATIVE: CASE EVENT DATE: 20140325
